FAERS Safety Report 9604025 (Version 4)
Quarter: 2014Q1

REPORT INFORMATION
  Report Type: Report from Study
  Country: BR (occurrence: BR)
  Receive Date: 20131008
  Receipt Date: 20140221
  Transmission Date: 20141002
  Serious: Yes (Hospitalization)
  Sender: FDA-Public Use
  Company Number: BR-ROCHE-1187453

PATIENT
  Sex: Female
  Weight: 66 kg

DRUGS (4)
  1. MABTHERA [Suspect]
     Indication: RHEUMATOID ARTHRITIS
     Route: 065
     Dates: start: 20110301
  2. AMLODIPINE BESYLATE [Concomitant]
     Route: 065
  3. EUTHYROX [Concomitant]
     Route: 065
  4. AMLODIPINE [Concomitant]

REACTIONS (11)
  - Arteriosclerosis [Recovering/Resolving]
  - Anaemia [Not Recovered/Not Resolved]
  - Decreased appetite [Unknown]
  - Malaise [Unknown]
  - Peripheral paralysis [Unknown]
  - Pain in extremity [Unknown]
  - Dizziness [Not Recovered/Not Resolved]
  - Cardiac arrest [Unknown]
  - Fatigue [Not Recovered/Not Resolved]
  - Dyspnoea [Not Recovered/Not Resolved]
  - Pulmonary oedema [Not Recovered/Not Resolved]
